FAERS Safety Report 9017671 (Version 1)
Quarter: 2013Q1

REPORT INFORMATION
  Report Type: Spontaneous
  Country: US (occurrence: US)
  Receive Date: 20130118
  Receipt Date: 20130118
  Transmission Date: 20140127
  Serious: No
  Sender: FDA-Public Use
  Company Number: US-009507513-1301USA003180

PATIENT
  Age: 62 Year
  Sex: Female

DRUGS (5)
  1. VICTRELIS [Suspect]
     Indication: CHRONIC HEPATITIS C
     Dosage: 800 MG, TID
     Route: 048
     Dates: start: 20120927
  2. PEGASYS [Suspect]
     Dosage: 180 MICROGRAM, QW
     Route: 058
  3. RIBAVIRIN [Suspect]
     Dosage: 600 MG, BID
     Route: 048
  4. PROCRIT [Concomitant]
     Dosage: 40000 DF, QW
     Route: 058
  5. NEUPOGEN [Concomitant]
     Dosage: 300 MICROGRAM, QW
     Route: 058

REACTIONS (1)
  - Joint swelling [Unknown]
